FAERS Safety Report 19063501 (Version 1)
Quarter: 2021Q1

REPORT INFORMATION
  Report Type: Spontaneous
  Country: US (occurrence: US)
  Receive Date: 20210326
  Receipt Date: 20210326
  Transmission Date: 20210420
  Serious: No
  Sender: FDA-Public Use
  Company Number: US-CELGENEUS-USA-20210305982

PATIENT
  Sex: Male
  Weight: 76.27 kg

DRUGS (3)
  1. POMALYST [Suspect]
     Active Substance: POMALIDOMIDE
     Indication: PLASMA CELL MYELOMA
     Dosage: 4 MILLIGRAM
     Route: 048
     Dates: start: 201911
  2. POMALYST [Suspect]
     Active Substance: POMALIDOMIDE
     Dosage: 4 MILLIGRAM
     Route: 048
     Dates: start: 2021
  3. POMALYST [Suspect]
     Active Substance: POMALIDOMIDE
     Dosage: 164 MILLIGRAM
     Route: 048
     Dates: start: 202101

REACTIONS (1)
  - Protein total decreased [Recovered/Resolved]
